FAERS Safety Report 7459768-2 (Version None)
Quarter: 2011Q2

REPORT INFORMATION
  Report Type: 
  Country: None (occurrence: None)
  Receive Date: 20110427
  Receipt Date: 20110408
  Transmission Date: 20111010
  Serious: Yes (Life-Threatening, Hospitalization, Congenital Anomaly, Other)
  Sender: FDA-Public Use
  Company Number: GER/GER/11/0017867

PATIENT
  Age: 41 Year
  Sex: Female
  Weight: 109 kg

DRUGS (2)
  1. OMEPRAZOLE [Suspect]
     Indication: REFLUX OESOPHAGITIS
     Dosage: 20 MG, 1 IN 1 D, ORAL
     Route: 048
     Dates: start: 20100113, end: 20100415
  2. FOLIO FORTE (MAXIPLEX /00992201/) [Concomitant]

REACTIONS (2)
  - DRUG EXPOSURE DURING PREGNANCY [None]
  - GESTATIONAL DIABETES [None]
